FAERS Safety Report 20368785 (Version 2)
Quarter: 2022Q1

REPORT INFORMATION
  Report Type: Spontaneous
  Country: US (occurrence: US)
  Receive Date: 20220124
  Receipt Date: 20220128
  Transmission Date: 20220424
  Serious: No
  Sender: FDA-Public Use
  Company Number: US-NOVARTISTESTPH-NVSC2022US014194

PATIENT
  Sex: Female

DRUGS (1)
  1. VOTRIENT [Suspect]
     Active Substance: PAZOPANIB HYDROCHLORIDE
     Indication: Uterine cancer
     Dosage: 200 MG, QD
     Route: 048
     Dates: start: 20210929

REACTIONS (7)
  - Vitreous floaters [Unknown]
  - Breast tenderness [Unknown]
  - Hyperkeratosis [Unknown]
  - Skin discolouration [Unknown]
  - Hair colour changes [Unknown]
  - Umbilical hernia [Unknown]
  - Myalgia [Unknown]
